FAERS Safety Report 6195927-7 (Version None)
Quarter: 2009Q2

REPORT INFORMATION
  Report Type: 
  Country: None (occurrence: None)
  Receive Date: 20090520
  Receipt Date: 20090512
  Transmission Date: 20091009
  Serious: Yes (Hospitalization)
  Sender: FDA-Public Use
  Company Number: US-AVENTIS-200913860US

PATIENT
  Sex: Female
  Weight: 85.45 kg

DRUGS (5)
  1. LOVENOX [Suspect]
     Dates: start: 20090401, end: 20090427
  2. CONTRAST MEDIA [Suspect]
     Dosage: DOSE: UNK
     Dates: start: 20090401, end: 20090401
  3. VANCOMYCIN [Concomitant]
     Dosage: DOSE: UNK
     Route: 042
     Dates: start: 20090401, end: 20090401
  4. OXYCONTIN [Concomitant]
     Dosage: DOSE: UNK
  5. TYLENOL [Concomitant]
     Dosage: DOSE: MAXIMUN DAILY DOSE

REACTIONS (9)
  - DRUG RASH WITH EOSINOPHILIA AND SYSTEMIC SYMPTOMS [None]
  - EOSINOPHIL COUNT INCREASED [None]
  - INFLUENZA LIKE ILLNESS [None]
  - MONOCYTE COUNT INCREASED [None]
  - PLATELET COUNT INCREASED [None]
  - PYREXIA [None]
  - RASH GENERALISED [None]
  - TRANSAMINASES INCREASED [None]
  - WHITE BLOOD CELL COUNT DECREASED [None]
